FAERS Safety Report 9204548 (Version 2)
Quarter: 2013Q2

REPORT INFORMATION
  Report Type: Spontaneous
  Country: IT (occurrence: None)
  Receive Date: 20130329
  Receipt Date: 20130403
  Transmission Date: 20140414
  Serious: Yes (Hospitalization)
  Sender: FDA-Public Use
  Company Number: AUR-APL-2013-02573

PATIENT
  Age: 46 Year
  Sex: Female

DRUGS (1)
  1. LEVOFLOXACIN [Suspect]
     Indication: INFLUENZA
     Route: 048
     Dates: start: 20130307, end: 20130308

REACTIONS (4)
  - Myalgia [None]
  - Back pain [None]
  - Muscle spasms [None]
  - Pain in extremity [None]
